APPROVED DRUG PRODUCT: SPARINE
Active Ingredient: PROMAZINE HYDROCHLORIDE
Strength: 10MG/5ML
Dosage Form/Route: SYRUP;ORAL
Application: N010942 | Product #003
Applicant: WYETH AYERST LABORATORIES
Approved: Approved Prior to Jan 1, 1982 | RLD: No | RS: No | Type: DISCN